FAERS Safety Report 8138227-8 (Version None)
Quarter: 2012Q1

REPORT INFORMATION
  Report Type: 
  Country: None (occurrence: None)
  Receive Date: 20120215
  Receipt Date: 20120208
  Transmission Date: 20120608
  Serious: Yes (Hospitalization)
  Sender: FDA-Public Use
  Company Number: PHEH2012US003520

PATIENT
  Sex: Male
  Weight: 65.76 kg

DRUGS (8)
  1. FLUTICASONE PROPIONATE [Concomitant]
     Dosage: 500 MG
  2. IBUPROFEN [Concomitant]
     Dosage: 200 MG, UNK
  3. FEXOFENADINE [Concomitant]
     Dosage: 180 MG, UNK
  4. MULTI-VITAMINS [Concomitant]
     Dosage: UNK
  5. LOVENOX [Concomitant]
     Dosage: 40/0.4 ML,
  6. AFINITOR [Suspect]
     Dosage: 5 MG, BID
     Route: 048
  7. ACETAMINOPHEN [Concomitant]
     Dosage: 325 MG, UNK
  8. COUMADIN [Concomitant]
     Dosage: 2 MG, UNK

REACTIONS (1)
  - LIVER ABSCESS [None]
